FAERS Safety Report 17413673 (Version 6)
Quarter: 2021Q3

REPORT INFORMATION
  Report Type: Spontaneous
  Country: IT (occurrence: IT)
  Receive Date: 20200213
  Receipt Date: 20210824
  Transmission Date: 20211014
  Serious: Yes (Hospitalization, Other)
  Sender: FDA-Public Use
  Company Number: NVSC2019IT057869

PATIENT
  Age: 81 Year
  Sex: Male
  Weight: 77 kg

DRUGS (1)
  1. OLMESARTAN MEDOXOMIL / HYDROCHLOROTHIAZIDE [Suspect]
     Active Substance: HYDROCHLOROTHIAZIDE\OLMESARTAN MEDOXOMIL
     Indication: HYPERTENSION
     Dosage: COMBINATION OF OLMESARTAN?MEDOXOMIL/HYDROCHLOROTHIAZIDE 20/12.5MG
     Route: 065
     Dates: start: 2016, end: 2018

REACTIONS (26)
  - Hypoalbuminaemia [Recovered/Resolved]
  - C-reactive protein increased [Recovered/Resolved]
  - Condition aggravated [Recovered/Resolved]
  - Therapy partial responder [Unknown]
  - Anaemia [Recovered/Resolved]
  - Hypernatraemia [Recovered/Resolved]
  - Vitamin B12 decreased [Recovered/Resolved]
  - Sprue-like enteropathy [Recovered/Resolved]
  - Pleural effusion [Recovered/Resolved]
  - Oedema peripheral [Recovered/Resolved]
  - Diverticulitis [Recovered/Resolved]
  - Gastrointestinal disorder [Recovered/Resolved]
  - Intestinal villi atrophy [Recovered/Resolved]
  - Gastrointestinal erosion [Recovered/Resolved]
  - Blood iron decreased [Recovered/Resolved]
  - Blood folate decreased [Recovered/Resolved]
  - Lymphangiectasia intestinal [Recovered/Resolved]
  - Asthenia [Recovered/Resolved]
  - Intestinal intraepithelial lymphocytes increased [Recovered/Resolved]
  - Ascites [Recovered/Resolved]
  - Hypokalaemia [Recovered/Resolved]
  - Malabsorption [Recovered/Resolved]
  - Gastrointestinal mucosa hyperaemia [Recovered/Resolved]
  - Generalised oedema [Recovered/Resolved]
  - Fluid retention [Recovered/Resolved]
  - Diarrhoea [Recovered/Resolved]

NARRATIVE: CASE EVENT DATE: 2016
